FAERS Safety Report 18217817 (Version 1)
Quarter: 2020Q3

REPORT INFORMATION
  Report Type: Spontaneous
  Country: IN (occurrence: IN)
  Receive Date: 20200901
  Receipt Date: 20200901
  Transmission Date: 20201103
  Serious: Yes (Hospitalization)
  Sender: FDA-Public Use
  Company Number: IN-MYLANLABS-2020M1075998

PATIENT
  Age: 4 Decade
  Sex: Female

DRUGS (4)
  1. IMATINIB. [Suspect]
     Active Substance: IMATINIB MESYLATE
     Dosage: 400 MILLIGRAM, QD RESTARTED FOR 2 WEEKS FROM POSTOPERATIVE DAY TILL SEPTEMBER 2013
     Route: 065
     Dates: start: 2013, end: 201309
  2. IMATINIB. [Suspect]
     Active Substance: IMATINIB MESYLATE
     Indication: GASTROINTESTINAL STROMAL TUMOUR
     Dosage: 400 MILLIGRAM, QD
     Route: 065
     Dates: start: 2012, end: 2013
  3. SUNITINIB [Suspect]
     Active Substance: SUNITINIB
     Indication: GASTROINTESTINAL STROMAL TUMOUR
     Dosage: 50 MILLIGRAM, QD SECOND?LINE THERAPY WITH SUNITINIB FOR 4 WEEKS AND 2 WEEKS OFF
     Route: 065
     Dates: start: 2013
  4. SORAFENIB [Suspect]
     Active Substance: SORAFENIB
     Indication: GASTROINTESTINAL STROMAL TUMOUR
     Dosage: THIRD?LINE THERAPY WITH SORAFENIB
     Route: 065
     Dates: start: 201409, end: 201411

REACTIONS (1)
  - Multiple-drug resistance [Unknown]
